FAERS Safety Report 5774659-0 (Version None)
Quarter: 2008Q2

REPORT INFORMATION
  Report Type: 
  Country: None (occurrence: None)
  Receive Date: 20080616
  Receipt Date: 20080606
  Transmission Date: 20081010
  Serious: Yes (Hospitalization)
  Sender: FDA-Public Use
  Company Number: FR-GENENTECH-262645

PATIENT
  Sex: Male

DRUGS (11)
  1. MABTHERA [Suspect]
     Indication: KIDNEY TRANSPLANT REJECTION
     Dates: start: 20071221
  2. OFLOXACINO [Suspect]
     Indication: PSEUDOMONAS INFECTION
     Dates: start: 20080417
  3. AUGMENTIN '125' [Suspect]
     Indication: PSEUDOMONAS INFECTION
     Dates: start: 20080415
  4. CIPROFLOXACIN [Suspect]
     Indication: PSEUDOMONAS INFECTION
     Dosage: UNK, UNK
     Dates: start: 20080420
  5. PROGRAF [Suspect]
     Indication: RENAL TRANSPLANT
     Dates: start: 20070308
  6. MYFORTIC [Suspect]
     Indication: RENAL TRANSPLANT
     Dates: start: 20071205
  7. TAZOCILLINE [Concomitant]
     Indication: DRUG USE FOR UNKNOWN INDICATION
     Dates: start: 20080420
  8. NEUPOGEN [Concomitant]
     Indication: DRUG USE FOR UNKNOWN INDICATION
     Dates: start: 20080307
  9. PREDNISOLONE [Concomitant]
     Indication: DRUG USE FOR UNKNOWN INDICATION
  10. INSULIN [Concomitant]
     Indication: DRUG USE FOR UNKNOWN INDICATION
  11. DARBEPOETIN ALFA [Concomitant]
     Indication: DRUG USE FOR UNKNOWN INDICATION

REACTIONS (1)
  - AGRANULOCYTOSIS [None]
